FAERS Safety Report 25161566 (Version 4)
Quarter: 2025Q2

REPORT INFORMATION
  Report Type: Report from Study
  Country: US (occurrence: US)
  Receive Date: 20250404
  Receipt Date: 20250630
  Transmission Date: 20250716
  Serious: Yes (Other)
  Sender: NOVARTIS
  Company Number: US-002147023-NVSC2025US054901

PATIENT
  Sex: Male

DRUGS (2)
  1. GILENYA [Suspect]
     Active Substance: FINGOLIMOD HYDROCHLORIDE
     Indication: Product used for unknown indication
     Route: 065
  2. KESIMPTA [Suspect]
     Active Substance: OFATUMUMAB
     Indication: Product used for unknown indication
     Route: 065

REACTIONS (6)
  - Multiple sclerosis relapse [Unknown]
  - Peroneal nerve palsy [Unknown]
  - Neuropathy peripheral [Unknown]
  - Illness [Unknown]
  - Fatigue [Unknown]
  - Inappropriate schedule of product administration [Unknown]
